FAERS Safety Report 8667082 (Version 2)
Quarter: 2012Q4

REPORT INFORMATION
  Report Type: 
  Country: US (occurrence: US)
  Receive Date: 20120717
  Receipt Date: 20121015
  Transmission Date: 20130627
  Serious: Yes (Hospitalization)
  Sender: FDA-Public Use
  Company Number: US-BIOGENIDEC-2012BI024706

PATIENT
  Age: 67 Year
  Sex: Female

DRUGS (1)
  1. AVONEX [Suspect]
     Indication: MULTIPLE SCLEROSIS
     Route: 030
     Dates: start: 20020630

REACTIONS (11)
  - Abdominal distension [Recovered/Resolved]
  - Blood urine present [Recovered/Resolved]
  - Dehydration [Recovered/Resolved]
  - Balance disorder [Recovered/Resolved]
  - Weight decreased [Recovered/Resolved]
  - Urinary tract infection [Recovered/Resolved]
  - Urinary incontinence [Recovered/Resolved]
  - Poor venous access [Unknown]
  - Fluid intake reduced [Unknown]
  - Body temperature increased [Recovered/Resolved]
  - Dyspnoea [Recovered/Resolved]
